FAERS Safety Report 15499425 (Version 1)
Quarter: 2018Q4

REPORT INFORMATION
  Report Type: Spontaneous
  Country: US (occurrence: US)
  Receive Date: 20181007
  Receipt Date: 20181007
  Transmission Date: 20190205
  Serious: Yes (Life-Threatening, Hospitalization, Disabling)
  Sender: FDA-Public Use
  Company Number: None

PATIENT
  Age: 61 Year
  Sex: Female
  Weight: 115.65 kg

DRUGS (7)
  1. LETROZOLE TAB (GENERIC FOR FEMARA) [Concomitant]
  2. CILEXETIL [Concomitant]
     Active Substance: CANDESARTAN CILEXETIL
  3. VITAMIN D3 10000 MILLIGRAMS [Concomitant]
  4. HYDROCHLORTHIAZIDE [Concomitant]
     Active Substance: HYDROCHLOROTHIAZIDE
  5. VALSART/HCTZ TAB 80-12.5 GENERIC FOR DIOVAN [Suspect]
     Active Substance: HYDROCHLOROTHIAZIDE\VALSARTAN
     Indication: BLOOD PRESSURE MEASUREMENT
     Dosage: ?          QUANTITY:1 TABLET(S);?
     Route: 048
  6. ONE DAILY 50+ COMPLETE MULTIVITAMIN MULTIMERAL [Concomitant]
  7. CANDESARTAN. [Concomitant]
     Active Substance: CANDESARTAN

REACTIONS (2)
  - Metastases to lymph nodes [None]
  - Breast cancer [None]

NARRATIVE: CASE EVENT DATE: 20180112
